FAERS Safety Report 13125827 (Version 1)
Quarter: 2017Q1

REPORT INFORMATION
  Report Type: Spontaneous
  Country: US (occurrence: US)
  Receive Date: 20170117
  Receipt Date: 20170117
  Transmission Date: 20170428
  Serious: Yes (Hospitalization, Other)
  Sender: FDA-Public Use
  Company Number: None

PATIENT
  Age: 66 Year
  Sex: Female
  Weight: 63 kg

DRUGS (10)
  1. ATENOLOL. [Concomitant]
     Active Substance: ATENOLOL
  2. LANTUS [Concomitant]
     Active Substance: INSULIN GLARGINE
  3. PROLIA [Suspect]
     Active Substance: DENOSUMAB
     Indication: OSTEOPOROSIS
     Dosage: SUBCUTANEOUS 2 SHOTS PER YEAR?          ?
     Route: 058
     Dates: start: 20161208, end: 20161208
  4. AMLODIPINE [Concomitant]
     Active Substance: AMLODIPINE BESYLATE
  5. LIPITOR [Concomitant]
     Active Substance: ATORVASTATIN CALCIUM
  6. PROLIA [Suspect]
     Active Substance: DENOSUMAB
     Indication: BONE DISORDER
     Dosage: SUBCUTANEOUS 2 SHOTS PER YEAR?          ?
     Route: 058
     Dates: start: 20161208, end: 20161208
  7. HUMIRA [Concomitant]
     Active Substance: ADALIMUMAB
  8. TERAZOSIN [Concomitant]
     Active Substance: TERAZOSIN\TERAZOSIN HYDROCHLORIDE
  9. PEDNISONE [Concomitant]
  10. METFORMIN [Concomitant]
     Active Substance: METFORMIN HYDROCHLORIDE

REACTIONS (7)
  - Urinary tract infection [None]
  - Flatulence [None]
  - Abdominal pain [None]
  - Oxygen saturation decreased [None]
  - Immunodeficiency [None]
  - Lethargy [None]
  - Pain [None]

NARRATIVE: CASE EVENT DATE: 20170102
